FAERS Safety Report 16628360 (Version 1)
Quarter: 2019Q3

REPORT INFORMATION
  Report Type: Report from Study
  Country: None (occurrence: RO)
  Receive Date: 20190724
  Receipt Date: 20190724
  Transmission Date: 20191004
  Serious: Yes (Hospitalization)
  Sender: FDA-Public Use
  Company Number: RO-ABBVIE-19K-135-2860445-00

PATIENT
  Age: 77 Year
  Sex: Female

DRUGS (13)
  1. ALANERV [Concomitant]
     Active Substance: DIETARY SUPPLEMENT
     Indication: INTERVERTEBRAL DISC PROTRUSION
  2. AERIUS [Concomitant]
     Indication: PROPHYLAXIS
     Route: 048
  3. MEDROL [Concomitant]
     Active Substance: METHYLPREDNISOLONE
     Indication: RHEUMATOID ARTHRITIS
     Route: 048
     Dates: start: 201905
  4. ALPHA D3 [Concomitant]
     Active Substance: ALFACALCIDOL
     Indication: BONE PAIN
     Dosage: UNKNOWN
     Route: 048
  5. ALPHA D3 [Concomitant]
     Active Substance: ALFACALCIDOL
     Indication: ARTHRALGIA
  6. ASPENTER [Concomitant]
     Active Substance: ASPIRIN
     Indication: CARDIAC DISORDER
     Dosage: UNKNOWN
     Route: 048
  7. SERMION [Concomitant]
     Active Substance: NICERGOLINE
     Indication: DIZZINESS
     Route: 048
     Dates: start: 2014
  8. PARACETAMOL [Concomitant]
     Active Substance: ACETAMINOPHEN
     Indication: PROPHYLAXIS
     Route: 048
  9. XYZAL [Concomitant]
     Active Substance: LEVOCETIRIZINE DIHYDROCHLORIDE
     Indication: PROPHYLAXIS
     Route: 048
  10. HUMIRA [Suspect]
     Active Substance: ADALIMUMAB
     Indication: RHEUMATOID ARTHRITIS
     Route: 058
     Dates: start: 20180615
  11. LEFLUNOMIDE. [Concomitant]
     Active Substance: LEFLUNOMIDE
     Indication: PROPHYLAXIS
     Route: 048
     Dates: start: 20180807
  12. NEXIUM [Concomitant]
     Active Substance: ESOMEPRAZOLE MAGNESIUM
     Indication: PROPHYLAXIS
     Dosage: UNKNOWN
     Route: 048
  13. ALANERV [Concomitant]
     Active Substance: DIETARY SUPPLEMENT
     Indication: SCOLIOSIS
     Route: 048
     Dates: start: 201809

REACTIONS (7)
  - Intervertebral disc protrusion [Recovering/Resolving]
  - Bone pain [Recovering/Resolving]
  - Dysuria [Not Recovered/Not Resolved]
  - Nasopharyngitis [Recovering/Resolving]
  - Chest pain [Not Recovered/Not Resolved]
  - Fatigue [Not Recovered/Not Resolved]
  - Pharyngitis [Recovered/Resolved]

NARRATIVE: CASE EVENT DATE: 201808
